FAERS Safety Report 8364654-X (Version None)
Quarter: 2012Q2

REPORT INFORMATION
  Report Type: 
  Country: None (occurrence: None)
  Receive Date: 20120516
  Receipt Date: 20120511
  Transmission Date: 20120825
  Serious: Yes (Hospitalization)
  Sender: FDA-Public Use
  Company Number: US-AMGEN-US353283

PATIENT
  Age: 67 Year
  Sex: Female
  Weight: 104.4 kg

DRUGS (19)
  1. NPLATE [Suspect]
     Dosage: 224 MUG/KG, UNK
     Dates: end: 20090625
  2. GRANISETRON  HCL [Concomitant]
     Dosage: 1 MG, UNK
     Dates: start: 20090909
  3. CALCIUM [Concomitant]
  4. SOTALOL HCL [Concomitant]
     Dosage: 80 MG, QD
     Route: 048
  5. VITAMIN D [Concomitant]
  6. LORAZEPAM [Concomitant]
     Indication: NAUSEA
     Dosage: 2 MG, Q4H
     Route: 048
  7. DIAZEPAM [Concomitant]
     Route: 048
  8. IRON DEXTRAN [Concomitant]
     Dosage: 25 MG, UNK
     Dates: start: 20090506
  9. DIGOXIN [Concomitant]
     Dosage: 125 MUG, QD
     Route: 048
  10. NPLATE [Suspect]
     Indication: IDIOPATHIC THROMBOCYTOPENIC PURPURA
     Dosage: 105 MUG, QWK
     Route: 058
     Dates: start: 20090407
  11. UNSPECIFIED MEDICATION [Concomitant]
     Dosage: UNK UNK, UNK
  12. CYCLOBENZAPRINE HCL [Concomitant]
     Dosage: 10 MG, QID
  13. HYDROCODONE BITARTRATE AND ACETAMINOPHEN [Concomitant]
     Indication: PAIN
     Dosage: UNK, Q4H
     Route: 048
  14. ROPINIROLE HYDROCHLORIDE [Concomitant]
     Dosage: 2 MG, QD
     Route: 048
  15. BENAZEPRIL HYDROCHLORIDE [Concomitant]
     Dosage: 10 MG, QD
     Route: 048
  16. FLUOXETINE HYDROCHLORIDE [Concomitant]
  17. OMEPRAZOLE [Concomitant]
     Dosage: 40 MG, QD
     Route: 048
  18. PROMETHAZINE HCL [Concomitant]
     Dosage: 25 MG, UNK
     Route: 030
  19. RECLAST [Concomitant]
     Indication: OSTEOPOROSIS
     Dosage: UNK UNK, Q12MO

REACTIONS (8)
  - DIARRHOEA [None]
  - NAUSEA [None]
  - DEHYDRATION [None]
  - OESOPHAGITIS [None]
  - GASTROOESOPHAGEAL REFLUX DISEASE [None]
  - ABDOMINAL PAIN [None]
  - SINUSITIS [None]
  - ABDOMINAL PAIN UPPER [None]
